FAERS Safety Report 13275190 (Version 1)
Quarter: 2017Q1

REPORT INFORMATION
  Report Type: Spontaneous
  Country: BE (occurrence: BE)
  Receive Date: 20170227
  Receipt Date: 20170227
  Transmission Date: 20170428
  Serious: Yes (Other)
  Sender: FDA-Public Use
  Company Number: PHHY2017BE024725

PATIENT
  Age: 33 Year
  Sex: Female

DRUGS (2)
  1. CLINDAMYCIN. [Suspect]
     Active Substance: CLINDAMYCIN
     Indication: OROPHARYNGEAL PAIN
     Route: 065
  2. IBUPROFEN. [Concomitant]
     Active Substance: IBUPROFEN
     Indication: OROPHARYNGEAL PAIN
     Route: 065

REACTIONS (2)
  - Acute kidney injury [Recovered/Resolved]
  - Thrombotic microangiopathy [Recovered/Resolved]
